FAERS Safety Report 6225306-5 (Version None)
Quarter: 2009Q2

REPORT INFORMATION
  Report Type: 
  Country: None (occurrence: None)
  Receive Date: 20090612
  Receipt Date: 20090413
  Transmission Date: 20091009
  Serious: No
  Sender: FDA-Public Use
  Company Number: US-ABBOTT-09P-163-0568223-00

PATIENT
  Sex: Female
  Weight: 79.45 kg

DRUGS (12)
  1. HUMIRA [Suspect]
     Indication: RHEUMATOID ARTHRITIS
     Route: 058
     Dates: start: 20051101
  2. PREDNISONE [Concomitant]
     Indication: RHEUMATOID ARTHRITIS
     Route: 048
  3. METHOTREXATE [Concomitant]
     Indication: RHEUMATOID ARTHRITIS
     Dosage: 2.5 MG X 3 WEEKLY
     Route: 048
  4. FOLIC ACID [Concomitant]
     Indication: MEDICAL DIET
     Route: 048
  5. EFFEXOR XR [Concomitant]
     Indication: DEPRESSION
     Route: 048
  6. EFFEXOR XR [Concomitant]
     Indication: ANXIETY
  7. SPIRIVA [Concomitant]
     Indication: BRONCHITIS CHRONIC
     Route: 055
     Dates: start: 20090401
  8. ACTONEL [Concomitant]
     Indication: OSTEOPOROSIS
  9. PREVACID [Concomitant]
     Indication: GASTROOESOPHAGEAL REFLUX DISEASE
     Route: 048
  10. SYNTHROID [Concomitant]
     Indication: HYPOTHYROIDISM
  11. VICODIN [Concomitant]
     Indication: PAIN
     Dosage: 7.5/750 MG
     Route: 048
  12. ADVAIR DISC [Concomitant]
     Dosage: 250/50MG TWICE DAILY
     Route: 055

REACTIONS (6)
  - AGEUSIA [None]
  - ANOSMIA [None]
  - BRONCHITIS [None]
  - PRURITUS [None]
  - SINUS HEADACHE [None]
  - SINUSITIS [None]
